FAERS Safety Report 5027784-6 (Version None)
Quarter: 2006Q2

REPORT INFORMATION
  Report Type: 
  Country: None (occurrence: None)
  Receive Date: 20060614
  Receipt Date: 20060614
  Transmission Date: 20061013
  Serious: Yes (Death)
  Sender: FDA-Public Use
  Company Number: None

PATIENT
  Age: 11 Year
  Sex: Male
  Weight: 80 kg

DRUGS (5)
  1. DAUNORUBICIN HCL [Suspect]
     Dosage: 144 MG
  2. METHOTREXATE [Suspect]
     Dosage: 15 MG
  3. PEG-L-ASPARAGINASE (K-H) [Suspect]
     Dosage: 4475 IU
  4. PREDNISONE TAB [Suspect]
     Dosage: 1980 MG
  5. VINCRISTINE SULFATE [Suspect]
     Dosage: 6 MG

REACTIONS (18)
  - ACIDOSIS [None]
  - CARDIO-RESPIRATORY ARREST [None]
  - CONVULSION [None]
  - ELECTROLYTE IMBALANCE [None]
  - FLUID OVERLOAD [None]
  - HAEMODYNAMIC INSTABILITY [None]
  - HYPERCALCAEMIA [None]
  - HYPOCALCAEMIA [None]
  - HYPOKALAEMIA [None]
  - HYPONATRAEMIA [None]
  - HYPOTENSION [None]
  - METABOLIC DISORDER [None]
  - PULSE PRESSURE DECREASED [None]
  - PUPILLARY REFLEX IMPAIRED [None]
  - SHOCK [None]
  - THERAPY NON-RESPONDER [None]
  - URINE OUTPUT DECREASED [None]
  - VENTRICULAR FIBRILLATION [None]
